FAERS Safety Report 18902156 (Version 2)
Quarter: 2021Q1

REPORT INFORMATION
  Report Type: Spontaneous
  Country: JP (occurrence: JP)
  Receive Date: 20210216
  Receipt Date: 20210225
  Transmission Date: 20210420
  Serious: Yes (Death, Other)
  Sender: FDA-Public Use
  Company Number: JP-ALLERGAN-2106588US

PATIENT
  Sex: Male

DRUGS (2)
  1. BOTOX [Suspect]
     Active Substance: ONABOTULINUMTOXINA
     Dosage: 400 IU, SINGLE
     Route: 030
     Dates: start: 20200915, end: 20200915
  2. BOTOX [Suspect]
     Active Substance: ONABOTULINUMTOXINA
     Indication: MUSCLE SPASTICITY
     Dosage: 400 IU, SINGLE
     Route: 030
     Dates: start: 20210126, end: 20210126

REACTIONS (2)
  - Pneumonia pneumococcal [Unknown]
  - Sepsis [Fatal]

NARRATIVE: CASE EVENT DATE: 20210130
